FAERS Safety Report 25428056 (Version 1)
Quarter: 2025Q2

REPORT INFORMATION
  Report Type: Spontaneous
  Country: US (occurrence: US)
  Receive Date: 20250612
  Receipt Date: 20250612
  Transmission Date: 20250717
  Serious: Yes (Hospitalization)
  Sender: ROCHE
  Company Number: US-ROCHE-10000308388

PATIENT
  Age: 10 Month
  Sex: Male
  Weight: 8.89 kg

DRUGS (1)
  1. HEMLIBRA [Suspect]
     Active Substance: EMICIZUMAB-KXWH
     Indication: Factor VIII deficiency
     Dosage: STRENGTH: 12MG/ 0.4ML
     Route: 058
     Dates: start: 202501

REACTIONS (2)
  - Off label use [Unknown]
  - Circumcision [Unknown]

NARRATIVE: CASE EVENT DATE: 20250508
